FAERS Safety Report 8915758 (Version 1)
Quarter: 2012Q4

REPORT INFORMATION
  Report Type: 
  Country: DE (occurrence: DE)
  Receive Date: 20121119
  Receipt Date: 20121119
  Transmission Date: 20130627
  Serious: Yes (Hospitalization, Other)
  Sender: FDA-Public Use
  Company Number: DE-ELI_LILLY_AND_COMPANY-DE201211003738

PATIENT
  Age: 48 Year
  Sex: Male

DRUGS (3)
  1. EFIENT [Suspect]
     Indication: PERCUTANEOUS CORONARY INTERVENTION
     Dosage: UNK
     Dates: start: 201204
  2. ASS [Concomitant]
     Dosage: UNK
  3. ANTIHYPERTENSIVES [Concomitant]
     Indication: BLOOD PRESSURE

REACTIONS (3)
  - Haematoma [Not Recovered/Not Resolved]
  - Blood urine present [Not Recovered/Not Resolved]
  - Fall [Recovered/Resolved]
